FAERS Safety Report 14149648 (Version 1)
Quarter: 2017Q4

REPORT INFORMATION
  Report Type: Spontaneous
  Country: US (occurrence: US)
  Receive Date: 20171101
  Receipt Date: 20171101
  Transmission Date: 20180321
  Serious: No
  Sender: FDA-Public Use
  Company Number: US-BAYER-2017-209426

PATIENT
  Age: 75 Year
  Sex: Female
  Weight: 91 kg

DRUGS (3)
  1. MIRALAX [Suspect]
     Active Substance: POLYETHYLENE GLYCOL 3350
     Indication: GASTROINTESTINAL DISORDER
     Dosage: 2 DF, QD
     Route: 048
  2. MIRALAX [Suspect]
     Active Substance: POLYETHYLENE GLYCOL 3350
     Indication: COLONOSCOPY
  3. ASPIRIN (E.C.) [ACETYLSALICYLIC ACID] [Concomitant]
     Active Substance: ASPIRIN
     Dosage: UNK

REACTIONS (7)
  - Product taste abnormal [Unknown]
  - Inappropriate prescribing [None]
  - Product odour abnormal [None]
  - Poor quality drug administered [None]
  - Product use issue [None]
  - Product use issue [Unknown]
  - Off label use [None]

NARRATIVE: CASE EVENT DATE: 201710
